FAERS Safety Report 4682242-3 (Version None)
Quarter: 2005Q2

REPORT INFORMATION
  Report Type: 
  Country: None (occurrence: None)
  Receive Date: 20050606
  Receipt Date: 20050526
  Transmission Date: 20051028
  Serious: Yes (Life-Threatening)
  Sender: FDA-Public Use
  Company Number: IT-AMGEN-UK136016

PATIENT
  Sex: Female

DRUGS (2)
  1. ARANESP [Suspect]
     Indication: DRUG USE FOR UNKNOWN INDICATION
     Route: 058
     Dates: start: 20050520, end: 20050520
  2. CHLORPHENIRAMINE MALEATE [Suspect]
     Route: 042
     Dates: start: 20050520, end: 20050520

REACTIONS (1)
  - ANAPHYLACTIC SHOCK [None]
